FAERS Safety Report 8181719-6 (Version None)
Quarter: 2012Q1

REPORT INFORMATION
  Report Type: 
  Country: None (occurrence: None)
  Receive Date: 20120302
  Receipt Date: 20120228
  Transmission Date: 20120608
  Serious: Yes (Other)
  Sender: FDA-Public Use
  Company Number: US-BAYER-2012-020082

PATIENT
  Age: 76 Year
  Sex: Male

DRUGS (1)
  1. ALEVE (CAPLET) [Suspect]
     Indication: ANALGESIC THERAPY

REACTIONS (5)
  - MUSCULAR WEAKNESS [None]
  - HYPOTONIA [None]
  - MOBILITY DECREASED [None]
  - NERVOUSNESS [None]
  - ARTHRALGIA [None]
